FAERS Safety Report 8348019-2 (Version None)
Quarter: 2012Q2

REPORT INFORMATION
  Report Type: 
  Country: None (occurrence: None)
  Receive Date: 20120509
  Receipt Date: 20120425
  Transmission Date: 20120825
  Serious: Yes (Death, Hospitalization, Other)
  Sender: FDA-Public Use
  Company Number: US-ACTELION-A-NJ2011-58346

PATIENT

DRUGS (16)
  1. ZYRTEC [Concomitant]
  2. TRACLEER [Concomitant]
     Indication: PULMONARY ARTERIAL HYPERTENSION
     Dosage: UNK
     Route: 048
     Dates: start: 20110111, end: 20110914
  3. PREDNISONE TAB [Concomitant]
  4. EPOPROSTENOL SODIUM [Suspect]
     Dosage: 22 NG/KG, PER MIN
     Route: 041
     Dates: start: 20120305, end: 20120320
  5. LOVENOX [Concomitant]
  6. REGLAN [Concomitant]
  7. XANAX [Concomitant]
  8. LASIX [Concomitant]
  9. NASONEX [Concomitant]
  10. POTASSIUM CHLORIDE [Concomitant]
  11. OXYGEN [Concomitant]
  12. MARINOL [Concomitant]
  13. EPOPROSTENOL SODIUM [Suspect]
     Indication: PULMONARY ARTERIAL HYPERTENSION
     Dosage: 8 NG/KG, PER MIN
     Route: 041
     Dates: start: 20111128, end: 20120304
  14. COUMADIN [Concomitant]
  15. ALDACTONE [Concomitant]
  16. NEXIUM [Concomitant]

REACTIONS (16)
  - RIGHT VENTRICULAR FAILURE [None]
  - THROMBOCYTOPENIA [None]
  - GASTROOESOPHAGEAL REFLUX DISEASE [None]
  - OEDEMA PERIPHERAL [None]
  - DEEP VEIN THROMBOSIS [None]
  - PLEURAL EFFUSION [None]
  - HEADACHE [None]
  - CARDIAC ARREST [None]
  - DISEASE PROGRESSION [None]
  - RENAL FAILURE ACUTE [None]
  - SCLERODERMA RENAL CRISIS [None]
  - PULMONARY ARTERIAL HYPERTENSION [None]
  - HYPOTENSION [None]
  - DYSPNOEA [None]
  - SYNCOPE [None]
  - PAIN IN JAW [None]
